FAERS Safety Report 20406995 (Version 3)
Quarter: 2022Q2

REPORT INFORMATION
  Report Type: Spontaneous
  Country: GB (occurrence: GB)
  Receive Date: 20220131
  Receipt Date: 20220405
  Transmission Date: 20220720
  Serious: Yes (Other)
  Sender: FDA-Public Use
  Company Number: GB-BIOGEN-2022BI01090487

PATIENT
  Sex: Male

DRUGS (1)
  1. TYSABRI [Suspect]
     Active Substance: NATALIZUMAB
     Indication: Product used for unknown indication
     Route: 065
     Dates: start: 2016

REACTIONS (3)
  - Hepatitis [Unknown]
  - Product dose omission issue [Unknown]
  - Liver function test increased [Unknown]

NARRATIVE: CASE EVENT DATE: 20201201
